FAERS Safety Report 19836500 (Version 1)
Quarter: 2021Q3

REPORT INFORMATION
  Report Type: Spontaneous
  Country: US (occurrence: US)
  Receive Date: 20210914
  Receipt Date: 20210914
  Transmission Date: 20211014
  Serious: No
  Sender: FDA-Public Use
  Company Number: US-SK LIFE SCIENCE, INC.-SKPVG-2021-000902

PATIENT

DRUGS (12)
  1. XCOPRI [Suspect]
     Active Substance: CENOBAMATE
     Dosage: 225 MILLIGRAM (HALF OF 50MG AND 200MG TABLET), QD
     Route: 048
  2. VIMPAT [Concomitant]
     Active Substance: LACOSAMIDE
     Indication: PRODUCT USED FOR UNKNOWN INDICATION
     Dosage: 100 MILLIGRAM
     Route: 065
  3. XCOPRI [Suspect]
     Active Substance: CENOBAMATE
     Dosage: 200 MILLIGRAM, QD
     Route: 048
     Dates: start: 20210821
  4. VIMPAT [Concomitant]
     Active Substance: LACOSAMIDE
     Dosage: 50 MILLIGRAM
     Route: 065
  5. VITAMIN D                          /00107901/ [Concomitant]
     Active Substance: ERGOCALCIFEROL
     Indication: PRODUCT USED FOR UNKNOWN INDICATION
     Dosage: UNK
     Route: 065
  6. DIVALPROEX [Concomitant]
     Active Substance: DIVALPROEX SODIUM
     Indication: PRODUCT USED FOR UNKNOWN INDICATION
     Dosage: 250 MILLIGRAM, ER.
     Route: 065
  7. FOLIC ACID. [Concomitant]
     Active Substance: FOLIC ACID
     Indication: PRODUCT USED FOR UNKNOWN INDICATION
     Dosage: UNK, QD
     Route: 065
  8. XCOPRI [Suspect]
     Active Substance: CENOBAMATE
     Indication: EPILEPSY
     Dosage: 100 MILLIGRAM(HALF OF 200MG)
     Route: 048
  9. XCOPRI [Suspect]
     Active Substance: CENOBAMATE
     Dosage: 225 MILLIGRAM (HALF OF 50MG AND 200MG TABLETS), QD
     Route: 048
  10. DIVALPROEX [Concomitant]
     Active Substance: DIVALPROEX SODIUM
     Dosage: 500 MILLIGRAM
     Route: 065
  11. XCOPRI [Suspect]
     Active Substance: CENOBAMATE
     Indication: SEIZURE
     Dosage: UNK
     Route: 048
     Dates: start: 2020
  12. VIMPAT [Concomitant]
     Active Substance: LACOSAMIDE
     Dosage: 200 MILLIGRAM
     Route: 065

REACTIONS (5)
  - Product packaging quantity issue [Not Recovered/Not Resolved]
  - Wrong technique in product usage process [Not Recovered/Not Resolved]
  - Fall [Not Recovered/Not Resolved]
  - Generalised tonic-clonic seizure [Not Recovered/Not Resolved]
  - Product availability issue [Not Recovered/Not Resolved]

NARRATIVE: CASE EVENT DATE: 2020
